FAERS Safety Report 6502850-4 (Version None)
Quarter: 2009Q4

REPORT INFORMATION
  Report Type: 
  Country: None (occurrence: None)
  Receive Date: 20091217
  Receipt Date: 20091116
  Transmission Date: 20100525
  Serious: No
  Sender: FDA-Public Use
  Company Number: US-BAYER-200939960NA

PATIENT
  Age: 28 Year
  Sex: Female

DRUGS (2)
  1. MIRENA [Suspect]
     Indication: CONTRACEPTION
     Dosage: CONTINUOUS
     Route: 015
     Dates: start: 20060101
  2. MIRENA [Suspect]
     Dosage: CONTINUOUS
     Route: 015

REACTIONS (7)
  - ABDOMINAL PAIN LOWER [None]
  - BREAST TENDERNESS [None]
  - HUMAN PAPILLOMA VIRUS TEST POSITIVE [None]
  - HYPOMENORRHOEA [None]
  - MENSTRUATION DELAYED [None]
  - PROCEDURAL PAIN [None]
  - VEIN DISORDER [None]
